FAERS Safety Report 9540221 (Version 1)
Quarter: 2013Q3

REPORT INFORMATION
  Report Type: Spontaneous
  Country: IL (occurrence: IL)
  Receive Date: 20130920
  Receipt Date: 20130920
  Transmission Date: 20140515
  Serious: Yes (Other)
  Sender: FDA-Public Use
  Company Number: IL-BAXTER-2013BAX036603

PATIENT
  Age: 50 Year
  Sex: Male

DRUGS (3)
  1. OSMITROL 20% INJ. (MANNITOL 20% INJ. USP) [Suspect]
     Indication: BRAIN OEDEMA
     Route: 042
  2. ENALAPRIL [Suspect]
     Indication: HYPERTENSION
     Route: 065
  3. DILTIAZEM [Concomitant]
     Indication: MYOCARDIAL ISCHAEMIA
     Route: 065

REACTIONS (1)
  - Renal failure acute [Recovering/Resolving]
